FAERS Safety Report 7620380-3 (Version None)
Quarter: 2011Q3

REPORT INFORMATION
  Report Type: 
  Country: None (occurrence: None)
  Receive Date: 20110718
  Receipt Date: 20110718
  Transmission Date: 20111222
  Serious: Yes (Other)
  Sender: FDA-Public Use
  Company Number: None

PATIENT
  Age: 51 Year
  Sex: Female
  Weight: 92.532 kg

DRUGS (9)
  1. TAXOTERE [Interacting]
  2. BENADRYL [Interacting]
     Route: 042
  3. DECADRON [Interacting]
     Route: 042
  4. CARBOPLATIN [Interacting]
  5. EMEND [Interacting]
     Route: 042
  6. HERCEPTIN [Interacting]
  7. FOSAPREPITANT [Suspect]
     Indication: PROPHYLAXIS OF NAUSEA AND VOMITING
     Dosage: 150 MG IN 150 ML
     Route: 041
     Dates: start: 20110419, end: 20110419
  8. ZANTAC [Interacting]
     Route: 017
  9. ALOXI [Interacting]
     Route: 042

REACTIONS (3)
  - ERYTHEMA [None]
  - CHEMICAL INJURY [None]
  - INFUSION SITE EXTRAVASATION [None]
